FAERS Safety Report 13894610 (Version 1)
Quarter: 2017Q3

REPORT INFORMATION
  Report Type: Spontaneous
  Country: US (occurrence: None)
  Receive Date: 20170816
  Receipt Date: 20170816
  Transmission Date: 20171127
  Serious: No
  Sender: FDA-Public Use
  Company Number: None

PATIENT
  Age: 68 Year
  Sex: Female

DRUGS (1)
  1. SUTENT [Suspect]
     Active Substance: SUNITINIB MALATE

REACTIONS (6)
  - Pain in extremity [None]
  - Dry skin [None]
  - Skin disorder [None]
  - Skin fissures [None]
  - Skin exfoliation [None]
  - Colitis ulcerative [None]

NARRATIVE: CASE EVENT DATE: 20170814
